FAERS Safety Report 8471499 (Version 3)
Quarter: 2018Q4

REPORT INFORMATION
  Report Type: Spontaneous
  Country: DK (occurrence: DK)
  Receive Date: 20120322
  Receipt Date: 20181029
  Transmission Date: 20190205
  Serious: Yes (Hospitalization, Other)
  Sender: FDA-Public Use
  Company Number: PHHY2012DK022895

PATIENT
  Age: 20 Year
  Sex: Male

DRUGS (3)
  1. METHYLPHENIDATE HYDROCHLORIDE. [Suspect]
     Active Substance: METHYLPHENIDATE HYDROCHLORIDE
     Indication: ATTENTION DEFICIT/HYPERACTIVITY DISORDER
     Dosage: 600 MG, UNK
     Route: 065
  2. METHYLPHENIDATE HYDROCHLORIDE. [Suspect]
     Active Substance: METHYLPHENIDATE HYDROCHLORIDE
     Dosage: 10 MG, QD
     Route: 065
  3. TRUXAL [Concomitant]
     Active Substance: CHLORPROTHIXENE
     Indication: PRODUCT USED FOR UNKNOWN INDICATION
     Dosage: UNK
     Route: 065

REACTIONS (13)
  - Electrocardiogram ST segment elevation [Unknown]
  - Myocarditis [Unknown]
  - Chronic obstructive pulmonary disease [Unknown]
  - Toxicity to various agents [Unknown]
  - Overdose [Unknown]
  - Pericarditis [Unknown]
  - Pulmonary embolism [Unknown]
  - Chest pain [Unknown]
  - Myocardial infarction [Unknown]
  - Cardiac contusion [Unknown]
  - Arteriospasm coronary [Unknown]
  - Pain [Unknown]
  - Intentional product misuse [Unknown]
